FAERS Safety Report 10037235 (Version 1)
Quarter: 2014Q1

REPORT INFORMATION
  Report Type: Spontaneous
  Country: US (occurrence: None)
  Receive Date: 20140325
  Receipt Date: 20140325
  Transmission Date: 20141002
  Serious: Yes (Hospitalization)
  Sender: FDA-Public Use
  Company Number: None

PATIENT
  Age: 37 Year
  Sex: Female
  Weight: 90.72 kg

DRUGS (2)
  1. BEYAZ BAYER [Suspect]
     Indication: MENSTRUAL DISORDER
     Route: 048
     Dates: start: 20130301, end: 20140205
  2. BEYAZ BAYER [Suspect]
     Indication: POLYCYSTIC OVARIES
     Route: 048
     Dates: start: 20130301, end: 20140205

REACTIONS (5)
  - Hypoaesthesia [None]
  - Loss of consciousness [None]
  - Dyspnoea [None]
  - Pulmonary embolism [None]
  - Deep vein thrombosis [None]
